FAERS Safety Report 13269495 (Version 6)
Quarter: 2017Q2

REPORT INFORMATION
  Report Type: Spontaneous
  Country: VE (occurrence: VE)
  Receive Date: 20170224
  Receipt Date: 20170501
  Transmission Date: 20170830
  Serious: Yes (Other)
  Sender: FDA-Public Use
  Company Number: VE-ENDO PHARMACEUTICALS INC-2017-000843

PATIENT
  Sex: Male

DRUGS (2)
  1. AVEED [Suspect]
     Active Substance: TESTOSTERONE UNDECANOATE
     Indication: HYPOGONADISM
     Dosage: UNK, UNKNOWN
     Route: 065
     Dates: start: 2014
  2. AVEED [Suspect]
     Active Substance: TESTOSTERONE UNDECANOATE
     Indication: ANDROGEN DEFICIENCY

REACTIONS (5)
  - Product availability issue [Not Recovered/Not Resolved]
  - Hot flush [Unknown]
  - Dizziness [Unknown]
  - Hyperhidrosis [Unknown]
  - General physical health deterioration [Unknown]
